FAERS Safety Report 14569685 (Version 1)
Quarter: 2018Q1

REPORT INFORMATION
  Report Type: Spontaneous
  Country: DE (occurrence: DE)
  Receive Date: 20180224
  Receipt Date: 20180224
  Transmission Date: 20180509
  Serious: Yes (Other)
  Sender: FDA-Public Use
  Company Number: DE-TORRENT-00007832

PATIENT
  Age: 70 Year
  Sex: Female

DRUGS (3)
  1. MOXIFLOXACIN. [Suspect]
     Active Substance: MOXIFLOXACIN
     Indication: BRONCHITIS
     Dosage: UNK
     Route: 042
  2. MOXIFLOXACIN HEXAL [Suspect]
     Active Substance: MOXIFLOXACIN HYDROCHLORIDE
     Indication: BRONCHITIS
     Dosage: 400 MG, QD (FOR 7 DAYS)
     Route: 065
  3. DEKRISTOL [Concomitant]
     Active Substance: CHOLECALCIFEROL
     Indication: PRODUCT USED FOR UNKNOWN INDICATION
     Dosage: UNK
     Route: 065

REACTIONS (11)
  - Dysgeusia [Unknown]
  - Muscular weakness [Not Recovered/Not Resolved]
  - Parosmia [Unknown]
  - Asthenia [Recovered/Resolved]
  - Somnolence [Not Recovered/Not Resolved]
  - Tendon pain [Recovered/Resolved]
  - Urticaria [Unknown]
  - Myalgia [Not Recovered/Not Resolved]
  - Hallucination [Recovered/Resolved]
  - Cardiac failure [Unknown]
  - Dyspnoea [Unknown]
